FAERS Safety Report 11724746 (Version 1)
Quarter: 2015Q4

REPORT INFORMATION
  Report Type: Spontaneous
  Country: US (occurrence: US)
  Receive Date: 20151111
  Receipt Date: 20151111
  Transmission Date: 20160304
  Serious: No
  Sender: FDA-Public Use
  Company Number: US-UCBSA-2015001020

PATIENT
  Age: 23 Year
  Sex: Male

DRUGS (1)
  1. VIMPAT [Suspect]
     Active Substance: LACOSAMIDE
     Indication: PRODUCT USED FOR UNKNOWN INDICATION
     Dosage: UNKNOWN DOSE
     Dates: start: 201404

REACTIONS (2)
  - Haemorrhage [Not Recovered/Not Resolved]
  - Gingival oedema [Not Recovered/Not Resolved]

NARRATIVE: CASE EVENT DATE: 201412
